FAERS Safety Report 22951955 (Version 2)
Quarter: 2023Q4

REPORT INFORMATION
  Report Type: Report from Study
  Country: US (occurrence: US)
  Receive Date: 20230918
  Receipt Date: 20231012
  Transmission Date: 20240110
  Serious: Yes (Hospitalization, Other)
  Sender: FDA-Public Use
  Company Number: US-UCBSA-2023030505

PATIENT
  Age: 1 Year
  Sex: Female

DRUGS (2)
  1. FINTEPLA [Suspect]
     Active Substance: FENFLURAMINE
     Indication: Severe myoclonic epilepsy of infancy
     Dosage: 1.3 MILLILITER, 2X/DAY (BID)
     Route: 048
     Dates: start: 20230515
  2. FINTEPLA [Suspect]
     Active Substance: FENFLURAMINE
     Dosage: 1.3 MILLILITER, 2X/DAY (BID)
     Route: 048
     Dates: start: 20230524

REACTIONS (3)
  - Seizure [Recovered/Resolved]
  - Human rhinovirus test positive [Unknown]
  - Off label use [Unknown]

NARRATIVE: CASE EVENT DATE: 20230515
